FAERS Safety Report 6921831-X (Version None)
Quarter: 2010Q3

REPORT INFORMATION
  Report Type: 
  Country: None (occurrence: None)
  Receive Date: 20100812
  Receipt Date: 20100802
  Transmission Date: 20110219
  Serious: Yes (Hospitalization, Other)
  Sender: FDA-Public Use
  Company Number: HQWYE366926FEB04

PATIENT
  Sex: Female
  Weight: 56.75 kg

DRUGS (8)
  1. EFFEXOR XR [Suspect]
     Indication: MIGRAINE
     Dosage: OVERDOSE AMOUNT UNKNOWN
     Route: 048
     Dates: start: 20030804, end: 20030804
  2. EFFEXOR XR [Suspect]
     Indication: DEPRESSION
  3. KETOPROFEN [Concomitant]
     Indication: HEADACHE
     Dosage: 75 MG 3 TIMES DAILY AS NEEDED
     Route: 048
  4. DARVOCET-N 100 [Concomitant]
     Indication: VULVAL ULCERATION
     Dosage: 100  MG PRN
     Dates: start: 20031201
  5. VALTREX [Concomitant]
     Indication: VULVAL ULCERATION
     Dates: start: 20031201, end: 20031203
  6. AUGMENTIN '125' [Concomitant]
     Indication: VULVAL ULCERATION
     Dates: start: 20031201, end: 20031210
  7. ACETAMINOPHEN [Suspect]
     Route: 048
     Dates: start: 20030804, end: 20030804
  8. NAPROXEN [Concomitant]
     Dosage: UNKNOWN

REACTIONS (17)
  - ABNORMAL BEHAVIOUR [None]
  - AGGRESSION [None]
  - AGITATION [None]
  - ANGER [None]
  - DRUG INEFFECTIVE [None]
  - EMOTIONAL DISORDER [None]
  - EUPHORIC MOOD [None]
  - HOSTILITY [None]
  - IMPULSIVE BEHAVIOUR [None]
  - INTENTIONAL OVERDOSE [None]
  - IRRITABILITY [None]
  - NAUSEA [None]
  - RESTLESSNESS [None]
  - SUICIDAL IDEATION [None]
  - SUICIDE ATTEMPT [None]
  - VOMITING [None]
  - WEIGHT DECREASED [None]
